FAERS Safety Report 21977547 (Version 2)
Quarter: 2023Q1

REPORT INFORMATION
  Report Type: Spontaneous
  Country: GB (occurrence: GB)
  Receive Date: 20230210
  Receipt Date: 20230225
  Transmission Date: 20230417
  Serious: Yes (Life-Threatening, Other)
  Sender: FDA-Public Use
  Company Number: GB-MHRA-ULY-RHA-494441

PATIENT
  Age: 35 Year
  Sex: Male
  Weight: 71 kg

DRUGS (1)
  1. ACETAMINOPHEN [Suspect]
     Active Substance: ACETAMINOPHEN
     Indication: Product used for unknown indication
     Dosage: UNK
     Route: 065
     Dates: start: 20230118

REACTIONS (2)
  - Analgesic drug level [Unknown]
  - Drug ineffective [Unknown]
